FAERS Safety Report 7200407-3 (Version None)
Quarter: 2010Q4

REPORT INFORMATION
  Report Type: 
  Country: None (occurrence: None)
  Receive Date: 20101214
  Receipt Date: 20101206
  Transmission Date: 20110411
  Serious: Yes (Hospitalization)
  Sender: FDA-Public Use
  Company Number: 1000017622

PATIENT
  Age: 56 Year
  Sex: Female
  Weight: 79.2 kg

DRUGS (8)
  1. BYSTOLIC [Suspect]
     Dosage: 10MG (10 MG, 1 IN 1 D), ORAL
     Route: 048
  2. VELCADE [Suspect]
     Indication: MULTIPLE MYELOMA
     Dosage: 1.3 MG/M2 (CYCLIC), INTRAVENOUS (NOT OTHERWISE SPECIFIED)
     Route: 042
     Dates: start: 20100507, end: 20101112
  3. DEXAMETHASONE [Suspect]
     Indication: MULTIPLE MYELOMA
     Dosage: 20MG (20 MG, CYCLIC), ORAL
     Route: 048
     Dates: start: 20100507, end: 20100601
  4. LENALIDOMIDE [Suspect]
     Indication: MULTIPLE MYELOMA
     Dosage: 25MG (25 MG, CYCLIC), ORAL
     Route: 048
     Dates: start: 20100507, end: 20101112
  5. AMIODARONE (AMIODARONE) [Suspect]
     Dosage: 200MG (200 MG,1 IN 1 D), ORAL
     Route: 048
  6. BENICAR [Suspect]
     Dosage: 40MG (40 MG,1 IN 1 D), ORAL
     Route: 048
  7. FLUDROCORTISONE ACETATE [Suspect]
  8. ASPIRIN [Concomitant]

REACTIONS (8)
  - ASTHENIA [None]
  - DEHYDRATION [None]
  - DYSSTASIA [None]
  - HYPERTENSION [None]
  - HYPOTENSION [None]
  - MUSCULAR WEAKNESS [None]
  - PLATELET COUNT ABNORMAL [None]
  - PRESYNCOPE [None]
